FAERS Safety Report 25365437 (Version 1)
Quarter: 2025Q2

REPORT INFORMATION
  Report Type: Spontaneous
  Country: RO (occurrence: RO)
  Receive Date: 20250527
  Receipt Date: 20250527
  Transmission Date: 20250716
  Serious: Yes (Other)
  Sender: ELI LILLY AND COMPANY
  Company Number: RO-Merck Healthcare KGaA-2025025255

PATIENT
  Age: 46 Year
  Sex: Male

DRUGS (4)
  1. ERBITUX [Suspect]
     Active Substance: CETUXIMAB
     Indication: Colon cancer metastatic
     Dosage: UNK UNK, 2/M
     Route: 065
     Dates: start: 202302
  2. FLUOROURACIL [Suspect]
     Active Substance: FLUOROURACIL
     Indication: Colon cancer metastatic
     Route: 065
     Dates: start: 202302
  3. LEUCOVORIN [Suspect]
     Active Substance: LEUCOVORIN\LEUCOVORIN CALCIUM
     Indication: Colon cancer metastatic
     Route: 065
     Dates: start: 202302
  4. OXALIPLATIN [Suspect]
     Active Substance: OXALIPLATIN
     Indication: Colon cancer metastatic
     Route: 065
     Dates: start: 202302

REACTIONS (7)
  - Gastrointestinal toxicity [Unknown]
  - Haematotoxicity [Unknown]
  - Portal vein thrombosis [Unknown]
  - Peripheral sensory neuropathy [Unknown]
  - Off label use [Unknown]
  - Mucosal inflammation [Unknown]
  - Skin toxicity [Unknown]

NARRATIVE: CASE EVENT DATE: 20240901
